FAERS Safety Report 17854171 (Version 8)
Quarter: 2021Q3

REPORT INFORMATION
  Report Type: Report from Study
  Country: US (occurrence: US)
  Receive Date: 20200603
  Receipt Date: 20210707
  Transmission Date: 20211014
  Serious: Yes (Hospitalization, Other)
  Sender: FDA-Public Use
  Company Number: US-INSMED, INC.-US-INS-20-00904

PATIENT
  Sex: Male

DRUGS (5)
  1. ARIKAYCE [Suspect]
     Active Substance: AMIKACIN
     Dosage: 590 MILLIGRAM
     Route: 055
     Dates: start: 2020, end: 2020
  2. ARIKAYCE [Suspect]
     Active Substance: AMIKACIN
     Dosage: 590 MILLIGRAM
     Route: 055
  3. ARIKAYCE [Suspect]
     Active Substance: AMIKACIN
     Indication: MYCOBACTERIAL INFECTION
     Dosage: 590 MILLIGRAM, QD
     Route: 055
     Dates: start: 2020, end: 2020
  4. ARIKAYCE [Suspect]
     Active Substance: AMIKACIN
     Dosage: 590 MILLIGRAM, QOD
     Route: 055
  5. ARIKAYCE [Suspect]
     Active Substance: AMIKACIN
     Dosage: 590 MILLIGRAM, QD
     Route: 055

REACTIONS (11)
  - Secretion discharge [Unknown]
  - Respiratory tract congestion [Unknown]
  - Chest discomfort [Unknown]
  - Product dose omission issue [Unknown]
  - Hospitalisation [Unknown]
  - Illness [Unknown]
  - Weight decreased [Unknown]
  - Pain [Unknown]
  - Off label use [Unknown]
  - Myocardial infarction [Unknown]
  - Therapy interrupted [Unknown]

NARRATIVE: CASE EVENT DATE: 2020
